FAERS Safety Report 5207953-2 (Version None)
Quarter: 2007Q1

REPORT INFORMATION
  Report Type: 
  Country: None (occurrence: None)
  Receive Date: 20070115
  Receipt Date: 20070105
  Transmission Date: 20070707
  Serious: Yes (Hospitalization)
  Sender: FDA-Public Use
  Company Number: US-ELI_LILLY_AND_COMPANY-US200603003237

PATIENT
  Age: 42 Year
  Sex: Female
  Weight: 127 kg

DRUGS (4)
  1. SERTRALINE [Concomitant]
     Dates: start: 19981201, end: 20020101
  2. PREDNISONE TAB [Concomitant]
     Dates: start: 19980330
  3. HALDOL [Concomitant]
     Dates: start: 19980301
  4. ZYPREXA [Suspect]
     Dates: start: 19890101, end: 19930101

REACTIONS (3)
  - DIABETES MELLITUS [None]
  - ECHOCARDIOGRAM [None]
  - RENAL DISORDER [None]
